FAERS Safety Report 9180114 (Version 2)
Quarter: 2013Q2

REPORT INFORMATION
  Report Type: Spontaneous
  Country: US (occurrence: US)
  Receive Date: 20130321
  Receipt Date: 20130411
  Transmission Date: 20140414
  Serious: No
  Sender: FDA-Public Use
  Company Number: US-009507513-1303USA010747

PATIENT
  Sex: Male
  Weight: 79.82 kg

DRUGS (4)
  1. MIRALAX [Suspect]
     Indication: CONSTIPATION
     Dosage: 5.67 G, UNKNOWN
     Route: 048
     Dates: start: 201203, end: 20130305
  2. MIRALAX [Suspect]
     Indication: MEDICAL OBSERVATION
  3. ZOCOR [Concomitant]
     Indication: CORONARY ARTERIAL STENT INSERTION
     Dosage: UNK, UNKNOWN
  4. ASPIRIN [Concomitant]
     Indication: CORONARY ARTERIAL STENT INSERTION
     Dosage: UNK, UNKNOWN

REACTIONS (6)
  - Fatigue [Recovered/Resolved]
  - Constipation [Unknown]
  - Underdose [Unknown]
  - Inappropriate schedule of drug administration [Unknown]
  - Incorrect drug administration duration [Unknown]
  - Incorrect drug administration rate [Unknown]
